FAERS Safety Report 22312876 (Version 1)
Quarter: 2023Q2

REPORT INFORMATION
  Report Type: Spontaneous
  Country: CN (occurrence: CN)
  Receive Date: 20230512
  Receipt Date: 20230512
  Transmission Date: 20230722
  Serious: Yes (Other)
  Sender: FDA-Public Use
  Company Number: CN-SA-SAC20230510000487

PATIENT
  Age: 97 Year
  Sex: Male
  Weight: 65 kg

DRUGS (1)
  1. PLAVIX [Suspect]
     Active Substance: CLOPIDOGREL BISULFATE
     Dosage: 75 MG, QD
     Route: 048
     Dates: start: 20230208, end: 20230423

REACTIONS (4)
  - Thrombosis [Recovering/Resolving]
  - Urethral haemorrhage [Recovering/Resolving]
  - Urinary tract infection [Recovering/Resolving]
  - Haematuria [Recovering/Resolving]

NARRATIVE: CASE EVENT DATE: 20230422
